FAERS Safety Report 17128251 (Version 1)
Quarter: 2019Q4

REPORT INFORMATION
  Report Type: Spontaneous
  Country: US (occurrence: US)
  Receive Date: 20191209
  Receipt Date: 20191209
  Transmission Date: 20200122
  Serious: No
  Sender: FDA-Public Use
  Company Number: US-UCBSA-2017001553

PATIENT
  Age: 17 Year
  Sex: Female

DRUGS (1)
  1. BRIVIACT [Suspect]
     Active Substance: BRIVARACETAM
     Indication: PRODUCT USED FOR UNKNOWN INDICATION
     Dosage: 50 MG, 2X/DAY (BID)

REACTIONS (4)
  - Abnormal behaviour [Recovered/Resolved]
  - Urticaria [Recovered/Resolved]
  - Aggression [Recovered/Resolved]
  - Contusion [Recovered/Resolved]
